FAERS Safety Report 13171417 (Version 3)
Quarter: 2021Q1

REPORT INFORMATION
  Report Type: Spontaneous
  Country: US (occurrence: US)
  Receive Date: 20170201
  Receipt Date: 20210211
  Transmission Date: 20210419
  Serious: No
  Sender: FDA-Public Use
  Company Number: US-RECKITT BENCKISER HEALTHCARE INT LIMITED-RB-93909-2016

PATIENT
  Sex: Male

DRUGS (1)
  1. KY DURATION FOR MEN [Suspect]
     Active Substance: LIDOCAINE
     Indication: PRODUCT USED FOR UNKNOWN INDICATION
     Dosage: UNK
     Route: 065
     Dates: start: 2016, end: 2016

REACTIONS (7)
  - Therapeutic product effect prolonged [Recovered/Resolved]
  - Suicidal ideation [Recovered/Resolved]
  - Ejaculation disorder [Recovered/Resolved]
  - Sensory loss [Recovered/Resolved]
  - Urinary incontinence [Recovered/Resolved]
  - Feeling abnormal [Recovered/Resolved]
  - Hypoaesthesia [Recovered/Resolved]

NARRATIVE: CASE EVENT DATE: 2016
